FAERS Safety Report 19010208 (Version 1)
Quarter: 2021Q1

REPORT INFORMATION
  Report Type: Spontaneous
  Country: US (occurrence: US)
  Receive Date: 20210315
  Receipt Date: 20210315
  Transmission Date: 20210420
  Serious: Yes (Other)
  Sender: FDA-Public Use
  Company Number: None

PATIENT
  Sex: Female

DRUGS (1)
  1. CINACALCET HCL 90MG CIPLA USA [Suspect]
     Active Substance: CINACALCET HYDROCHLORIDE
     Indication: CHRONIC KIDNEY DISEASE
     Route: 049
     Dates: start: 20190805

REACTIONS (3)
  - Nephrolithiasis [None]
  - Urinary tract infection [None]
  - Sepsis [None]
